FAERS Safety Report 14944824 (Version 1)
Quarter: 2018Q2

REPORT INFORMATION
  Report Type: Spontaneous
  Country: FR (occurrence: FR)
  Receive Date: 20180529
  Receipt Date: 20180529
  Transmission Date: 20180711
  Serious: Yes (Other)
  Sender: FDA-Public Use
  Company Number: FR-MERCK KGAA-2048556

PATIENT
  Age: 66 Year
  Sex: Female

DRUGS (1)
  1. NOVOTHYROX [Suspect]
     Active Substance: LEVOTHYROXINE SODIUM
     Indication: POST PROCEDURAL HYPOTHYROIDISM
     Dates: start: 2017, end: 2017

REACTIONS (25)
  - Dizziness [Recovered/Resolved]
  - Psychiatric symptom [None]
  - Hypothyroidism [Recovered/Resolved]
  - Fear of disease [None]
  - Thyroglobulin decreased [None]
  - Blood thyroid stimulating hormone decreased [Recovered/Resolved]
  - Fatigue [None]
  - Blood thyroid stimulating hormone increased [Recovered/Resolved]
  - Impaired driving ability [None]
  - Social avoidant behaviour [None]
  - Emotional distress [None]
  - Sleep disorder [Recovered/Resolved]
  - Thyroxine free increased [Recovered/Resolved]
  - Malaise [Recovered/Resolved]
  - Dysstasia [None]
  - Hyperthyroidism [Recovered/Resolved]
  - Decreased interest [None]
  - Tachycardia [Recovered/Resolved]
  - Disturbance in attention [None]
  - Thinking abnormal [None]
  - Impaired work ability [None]
  - Asthenia [Recovered/Resolved]
  - Anxiety [Recovered/Resolved]
  - Muscle spasms [None]
  - Diarrhoea [Recovered/Resolved]

NARRATIVE: CASE EVENT DATE: 20170420
